FAERS Safety Report 6426235-4 (Version None)
Quarter: 2009Q4

REPORT INFORMATION
  Report Type: 
  Country: None (occurrence: None)
  Receive Date: 20091104
  Receipt Date: 20091020
  Transmission Date: 20100525
  Serious: Yes (Other)
  Sender: FDA-Public Use
  Company Number: GB-ROCHE-523696

PATIENT
  Sex: Female

DRUGS (2)
  1. XELODA [Suspect]
     Route: 048
     Dates: start: 20070910, end: 20070924
  2. TAMOXIFEN CITRATE [Concomitant]
     Indication: BREAST CANCER
     Route: 048

REACTIONS (5)
  - DIARRHOEA [None]
  - NEUTROPENIA [None]
  - NEUTROPENIC SEPSIS [None]
  - STOMATITIS [None]
  - VAGINAL INFLAMMATION [None]
